FAERS Safety Report 23934176 (Version 1)
Quarter: 2024Q2

REPORT INFORMATION
  Report Type: Spontaneous
  Country: CA (occurrence: CA)
  Receive Date: 20240603
  Receipt Date: 20240603
  Transmission Date: 20240716
  Serious: Yes (Hospitalization, Other)
  Sender: FDA-Public Use
  Company Number: CA-TEVA-VS-3203566

PATIENT
  Age: 64 Year
  Sex: Male
  Weight: 97 kg

DRUGS (2)
  1. PREDNISONE [Suspect]
     Active Substance: PREDNISONE
     Indication: Product used for unknown indication
     Dosage: DOSAGE FORM: NOT SPECIFIED
     Route: 065
  2. ABIRATERONE ACETATE [Suspect]
     Active Substance: ABIRATERONE ACETATE
     Indication: Hormone-refractory prostate cancer
     Route: 048

REACTIONS (5)
  - Fluid retention [Recovered/Resolved]
  - Malignant spinal cord compression [Recovered/Resolved]
  - Hormone-refractory prostate cancer [Recovered/Resolved]
  - Oedema peripheral [Recovered/Resolved]
  - Prostate cancer [Recovered/Resolved]
